APPROVED DRUG PRODUCT: FLYRCADO
Active Ingredient: FLURPIRIDAZ F-18
Strength: 5-55mCi/ML
Dosage Form/Route: SOLUTION;INTRAVENOUS
Application: N215168 | Product #001
Applicant: GE HEALTHCARE INC
Approved: Sep 27, 2024 | RLD: Yes | RS: Yes | Type: RX

PATENTS:
Patent 9687571 | Expires: Nov 1, 2032
Patent 9603951 | Expires: May 2, 2031
Patent 9161997 | Expires: Feb 4, 2026
Patent 8936777 | Expires: Jun 30, 2031
Patent 8226929 | Expires: Jun 21, 2028
Patent 12527884 | Expires: May 13, 2042
Patent 7344702 | Expires: May 26, 2026

EXCLUSIVITY:
Code: NCE | Date: Sep 27, 2029